FAERS Safety Report 7471387-0 (Version None)
Quarter: 2011Q2

REPORT INFORMATION
  Report Type: 
  Country: None (occurrence: None)
  Receive Date: 20110510
  Receipt Date: 20110426
  Transmission Date: 20111010
  Serious: Yes (Hospitalization, Other)
  Sender: FDA-Public Use
  Company Number: US-ELI_LILLY_AND_COMPANY-US200912005305

PATIENT
  Sex: Female

DRUGS (2)
  1. FORTEO [Suspect]
     Indication: OSTEOPOROSIS
     Dosage: 20 UG, DAILY (1/D)
     Route: 065
     Dates: start: 20030101, end: 20060101
  2. FORTEO [Suspect]
     Dosage: 20 UG, DAILY (1/D)
     Route: 065
     Dates: start: 20090401

REACTIONS (6)
  - ROTATOR CUFF SYNDROME [None]
  - MUSCULOSKELETAL DISCOMFORT [None]
  - ARTHRITIS [None]
  - NECK PAIN [None]
  - FALL [None]
  - SHOULDER ARTHROPLASTY [None]
